FAERS Safety Report 6056872-0 (Version None)
Quarter: 2009Q1

REPORT INFORMATION
  Report Type: 
  Country: None (occurrence: None)
  Receive Date: 20090129
  Receipt Date: 20090121
  Transmission Date: 20090719
  Serious: Yes (Hospitalization)
  Sender: FDA-Public Use
  Company Number: A0765514A

PATIENT
  Age: 42 Year
  Sex: Female

DRUGS (13)
  1. ZIDOVUDINE [Suspect]
     Indication: HIV INFECTION
     Dates: start: 20080805, end: 20081209
  2. PREZISTA [Suspect]
     Indication: HIV INFECTION
     Route: 048
     Dates: start: 20081106
  3. ETRAVIRINE [Suspect]
     Indication: HIV INFECTION
     Route: 048
     Dates: start: 20080805
  4. RALTEGRAVIR [Suspect]
     Indication: HIV INFECTION
     Dates: start: 20080805
  5. RITONAVIR [Suspect]
     Indication: HIV INFECTION
  6. TRUVADA [Suspect]
     Indication: HIV INFECTION
     Dates: start: 20080805
  7. DEXTROMETHORPHAN HYDROBROMIDE [Concomitant]
     Indication: COUGH
  8. FLUCONAZOLE [Concomitant]
  9. LOMOTIL [Concomitant]
  10. IBUPROFEN [Concomitant]
  11. AZITHROMYCIN [Concomitant]
     Indication: PNEUMONIA
  12. PENTAMIDINE [Concomitant]
  13. PANTOPRAZOLE [Concomitant]

REACTIONS (30)
  - ABDOMINAL PAIN [None]
  - ANOREXIA [None]
  - APPETITE DISORDER [None]
  - ASTHENIA [None]
  - CACHEXIA [None]
  - CHEILITIS [None]
  - COUGH [None]
  - DEPRESSION [None]
  - DIARRHOEA [None]
  - DYSPNOEA [None]
  - FATIGUE [None]
  - GASTRIC ULCER [None]
  - GASTROINTESTINAL DISORDER [None]
  - GASTROINTESTINAL MUCOSAL DISORDER [None]
  - HEPATOTOXICITY [None]
  - HIATUS HERNIA [None]
  - HYPERSENSITIVITY [None]
  - IMMUNE RECONSTITUTION SYNDROME [None]
  - JAUNDICE [None]
  - OCULAR ICTERUS [None]
  - OESOPHAGEAL CANDIDIASIS [None]
  - OROPHARYNGEAL PAIN [None]
  - PANCREATITIS [None]
  - PANCYTOPENIA [None]
  - PNEUMONIA [None]
  - PYREXIA [None]
  - RASH [None]
  - RESPIRATORY DISTRESS [None]
  - TUBULOINTERSTITIAL NEPHRITIS [None]
  - WEIGHT DECREASED [None]
